FAERS Safety Report 9856062 (Version 2)
Quarter: 2014Q1

REPORT INFORMATION
  Report Type: Spontaneous
  Country: IT (occurrence: IT)
  Receive Date: 20140130
  Receipt Date: 20140211
  Transmission Date: 20141002
  Serious: Yes (Other)
  Sender: FDA-Public Use
  Company Number: PHHY2014IT009933

PATIENT
  Age: 30 Year
  Sex: Male

DRUGS (4)
  1. TEGRETOL [Suspect]
     Dosage: UNK UKN, UNK
     Dates: start: 20131001, end: 20131104
  2. GARDENALE [Interacting]
     Dosage: UNK (100MG)
     Dates: start: 20131001, end: 20131104
  3. GARDENALE [Interacting]
     Dosage: UNK (50 MG, IN THE EVENING)
     Dates: start: 20131104
  4. KEPPRA [Concomitant]
     Dosage: 1250 MG, BID
     Route: 048

REACTIONS (2)
  - Convulsion [Recovering/Resolving]
  - Drug interaction [Recovering/Resolving]
